FAERS Safety Report 11055624 (Version 2)
Quarter: 2015Q2

REPORT INFORMATION
  Report Type: Report from Study
  Country: NL (occurrence: NL)
  Receive Date: 20150422
  Receipt Date: 20150424
  Transmission Date: 20150821
  Serious: Yes (Death)
  Sender: FDA-Public Use
  Company Number: NL-ABBVIE-15P-114-1378999-00

PATIENT
  Sex: Male
  Weight: 62 kg

DRUGS (1)
  1. LUCRIN (LEUPRORELINE) [Suspect]
     Active Substance: LEUPROLIDE ACETATE
     Indication: PROSTATE CANCER
     Route: 058
     Dates: start: 20140528

REACTIONS (1)
  - Infection [Fatal]
